FAERS Safety Report 25052988 (Version 1)
Quarter: 2025Q1

REPORT INFORMATION
  Report Type: Spontaneous
  Country: US (occurrence: US)
  Receive Date: 20250307
  Receipt Date: 20250307
  Transmission Date: 20250408
  Serious: No
  Sender: SANOFI AVENTIS
  Company Number: US-SA-2025SA062211

PATIENT
  Age: 56 Year
  Sex: Female
  Weight: 79.45 kg

DRUGS (2)
  1. KEVZARA [Suspect]
     Active Substance: SARILUMAB
     Indication: Rheumatoid arthritis
     Dosage: 200 MG, QOW
     Route: 058
     Dates: start: 20240828, end: 202412
  2. KEVZARA [Suspect]
     Active Substance: SARILUMAB
     Indication: Psoriatic arthropathy

REACTIONS (2)
  - Visual impairment [Unknown]
  - Product use in unapproved indication [Unknown]

NARRATIVE: CASE EVENT DATE: 20240101
